FAERS Safety Report 16053058 (Version 5)
Quarter: 2020Q3

REPORT INFORMATION
  Report Type: Report from Study
  Country: CA (occurrence: CA)
  Receive Date: 20190308
  Receipt Date: 20200721
  Transmission Date: 20201102
  Serious: Yes (Death, Hospitalization)
  Sender: FDA-Public Use
  Company Number: PHHY2016CA018831

PATIENT
  Age: 62 Year
  Sex: Male

DRUGS (4)
  1. SANDOSTATIN LAR DEPOT [Suspect]
     Active Substance: OCTREOTIDE ACETATE
     Dosage: 10 MG, QMO, EVERY 4 WEEKS
     Route: 030
     Dates: start: 2016, end: 20160401
  2. SANDOSTATIN LAR DEPOT [Suspect]
     Active Substance: OCTREOTIDE ACETATE
     Dosage: 10 MG, QMO, EVERY 4 WEEKS
     Route: 030
     Dates: start: 20160527
  3. SANDOSTATIN LAR DEPOT [Suspect]
     Active Substance: OCTREOTIDE ACETATE
     Indication: NEUROENDOCRINE TUMOUR
     Dosage: 10 MG, QMO, EVERY 4 WEEKS
     Route: 030
     Dates: start: 20160121, end: 2016
  4. SANDOSTATIN LAR DEPOT [Suspect]
     Active Substance: OCTREOTIDE ACETATE
     Dosage: 20 MG, QMO, EVERY 4 WEEKS
     Route: 030
     Dates: start: 20160429, end: 20160429

REACTIONS (8)
  - Upper limb fracture [Unknown]
  - Diarrhoea [Unknown]
  - Decubitus ulcer [Unknown]
  - Blood pressure diastolic decreased [Unknown]
  - Pain [Unknown]
  - Death [Fatal]
  - Lung neoplasm [Unknown]
  - Faeces soft [Unknown]

NARRATIVE: CASE EVENT DATE: 20160526
